FAERS Safety Report 11395304 (Version 1)
Quarter: 2015Q3

REPORT INFORMATION
  Report Type: Spontaneous
  Country: US (occurrence: US)
  Receive Date: 20150819
  Receipt Date: 20150819
  Transmission Date: 20151125
  Serious: Yes (Death, Hospitalization)
  Sender: FDA-Public Use
  Company Number: US-ACTELION-A-NJ2015-122434

PATIENT
  Age: 63 Year
  Sex: Male

DRUGS (12)
  1. OPSUMIT [Suspect]
     Active Substance: MACITENTAN
     Indication: PULMONARY ARTERIAL HYPERTENSION
     Dosage: 10 MG, QD
     Route: 048
     Dates: start: 20150420
  2. SILDENAFIL. [Concomitant]
     Active Substance: SILDENAFIL
  3. TORSEMIDE. [Concomitant]
     Active Substance: TORSEMIDE
  4. NASONEX [Concomitant]
     Active Substance: MOMETASONE FUROATE
  5. NIASPAN [Concomitant]
     Active Substance: NIACIN
  6. BUMETANIDE. [Concomitant]
     Active Substance: BUMETANIDE
  7. ALBUTEROL W/IPRATROPIUM [Concomitant]
     Active Substance: ALBUTEROL\IPRATROPIUM
  8. TRADJENTA [Concomitant]
     Active Substance: LINAGLIPTIN
  9. GLIPIZIDE XL [Concomitant]
     Active Substance: GLIPIZIDE
  10. MAGNESIUM [Concomitant]
     Active Substance: MAGNESIUM
  11. METOLAZONE. [Concomitant]
     Active Substance: METOLAZONE
  12. SINGULAIR [Concomitant]
     Active Substance: MONTELUKAST SODIUM

REACTIONS (1)
  - Cardiac failure [Fatal]

NARRATIVE: CASE EVENT DATE: 20150730
